FAERS Safety Report 6462302-7 (Version None)
Quarter: 2009Q4

REPORT INFORMATION
  Report Type: 
  Country: None (occurrence: None)
  Receive Date: 20091130
  Receipt Date: 20091125
  Transmission Date: 20100525
  Serious: Yes (Other)
  Sender: FDA-Public Use
  Company Number: US-B.I. PHARMACEUTICALS,INC./RIDGEFIELD-2009-BP-12575BP

PATIENT
  Sex: Female

DRUGS (22)
  1. SPIRIVA [Suspect]
     Indication: CHRONIC OBSTRUCTIVE PULMONARY DISEASE
     Dosage: 18 MCG
     Route: 055
     Dates: start: 20060101
  2. COMBIVENT [Suspect]
     Indication: CHRONIC OBSTRUCTIVE PULMONARY DISEASE
     Route: 055
  3. ALENDRONATE SODIUM [Concomitant]
  4. FLUTICASONE PROPIONATE [Concomitant]
  5. CETIRIZINE [Concomitant]
     Dosage: 10 MCG
  6. GLUCOSAMINE CHONDROITIN [Concomitant]
  7. OS-CAL ULTRA [Concomitant]
     Dosage: 600 MG
  8. CALICUM [Concomitant]
     Dosage: 1200 MG
  9. MULTIVITAMIN HAS COQ10, LYCOPENE [Concomitant]
     Dosage: 600 MG
  10. VITAMIN B-12 [Concomitant]
     Dosage: 500 MCG
  11. LECITHIN [Concomitant]
     Dosage: 1200 MG
  12. VITAL GREEN [Concomitant]
  13. ASPIRIN [Concomitant]
     Dosage: 81 MG
  14. MEGARED OMEGA-3 KRILL OIL [Concomitant]
  15. GARLIC [Concomitant]
     Dosage: 1000 MG
  16. PAROXETINE HCL [Concomitant]
     Indication: FEELING OF RELAXATION
     Dosage: 20 MG
  17. TAMAZE [Concomitant]
     Indication: SLEEP DISORDER THERAPY
     Dosage: 30 MG
  18. OMEPRAZOLE [Concomitant]
     Indication: GASTROINTESTINAL DISORDER THERAPY
  19. DEXAMETHASONE TAB [Concomitant]
     Indication: INFLAMMATION
  20. DEXAMETHASONE TAB [Concomitant]
  21. ALPRAZOLAM [Concomitant]
     Indication: TREMOR
  22. ALPRAZOLAM [Concomitant]

REACTIONS (2)
  - DYSPNOEA [None]
  - SMALL CELL LUNG CANCER STAGE UNSPECIFIED [None]
